FAERS Safety Report 26002835 (Version 1)
Quarter: 2025Q4

REPORT INFORMATION
  Report Type: Spontaneous
  Country: EU (occurrence: EU)
  Receive Date: 20251106
  Receipt Date: 20251106
  Transmission Date: 20260118
  Serious: Yes (Other)
  Sender: AUROBINDO
  Company Number: EU-BAUSCH-BL-2019-021970

PATIENT
  Age: 67 Year
  Sex: Male

DRUGS (11)
  1. ALPRAZOLAM [Suspect]
     Active Substance: ALPRAZOLAM
     Indication: Anxiety disorder
     Dosage: UNK, INITIAL DOSAGE NOT STATED; LATER, IT WAS INCREASED TO 1.5-2 MG/DAILYUNK
     Route: 065
  2. ALPRAZOLAM [Suspect]
     Active Substance: ALPRAZOLAM
     Indication: Mixed anxiety and depressive disorder
  3. PREGABALIN [Suspect]
     Active Substance: PREGABALIN
     Indication: Anxiety disorder
     Dosage: UNK
     Route: 065
  4. VENLAFAXINE [Suspect]
     Active Substance: VENLAFAXINE HYDROCHLORIDE
     Indication: Anxiety disorder
     Dosage: UNK
     Route: 065
  5. BUSPIRONE [Suspect]
     Active Substance: BUSPIRONE HYDROCHLORIDE
     Indication: Anxiety disorder
     Dosage: UNK
     Route: 065
  6. HYDROXYZINE [Suspect]
     Active Substance: HYDROXYZINE HYDROCHLORIDE
     Indication: Anxiety disorder
     Dosage: 10 MILLIGRAM, ONCE A DAY
     Route: 065
  7. HYDROXYZINE [Suspect]
     Active Substance: HYDROXYZINE HYDROCHLORIDE
     Dosage: 25 MILLIGRAM, ONCE A DAY
     Route: 065
  8. CLORAZEPIC ACID [Suspect]
     Active Substance: CLORAZEPIC ACID
     Indication: Anxiety disorder
     Dosage: UNK
     Route: 065
  9. CLORAZEPIC ACID [Suspect]
     Active Substance: CLORAZEPIC ACID
     Indication: Mixed anxiety and depressive disorder
  10. PROMAZINE [Concomitant]
     Active Substance: PROMAZINE
     Indication: Anxiety disorder
     Dosage: 50 MILLIGRAM, 3 TIMES A DAY
     Route: 065
  11. PROMAZINE [Concomitant]
     Active Substance: PROMAZINE
     Dosage: 100 MILLIGRAM
     Route: 065

REACTIONS (3)
  - Drug tolerance [Recovered/Resolved]
  - Drug dependence [Recovered/Resolved]
  - Therapeutic product effect incomplete [Unknown]
